FAERS Safety Report 24808554 (Version 4)
Quarter: 2025Q1

REPORT INFORMATION
  Report Type: Report from Study
  Country: CA (occurrence: CA)
  Receive Date: 20250106
  Receipt Date: 20250207
  Transmission Date: 20250408
  Serious: No
  Sender: ROCHE
  Company Number: CA-ROCHE-3272083

PATIENT
  Age: 51 Year
  Sex: Female

DRUGS (3)
  1. OCREVUS [Suspect]
     Active Substance: OCRELIZUMAB
     Indication: Primary progressive multiple sclerosis
     Dosage: 300 MG AT DAY 0 AND 14, THEN 600 MG EVERY 6 MONTHS
     Route: 040
     Dates: start: 20230111
  2. BENADRYL [Concomitant]
     Active Substance: DIPHENHYDRAMINE HYDROCHLORIDE
  3. CANNABIDIOL [Concomitant]
     Active Substance: CANNABIDIOL

REACTIONS (22)
  - COVID-19 [Recovered/Resolved]
  - Throat irritation [Recovering/Resolving]
  - Multiple sclerosis [Not Recovered/Not Resolved]
  - Dry mouth [Not Recovered/Not Resolved]
  - Infusion related reaction [Recovering/Resolving]
  - Hypoaesthesia [Not Recovered/Not Resolved]
  - Insomnia [Recovering/Resolving]
  - Fatigue [Recovering/Resolving]
  - Migraine [Recovered/Resolved]
  - Chest discomfort [Recovering/Resolving]
  - Flatulence [Recovering/Resolving]
  - Back pain [Unknown]
  - Asthenia [Not Recovered/Not Resolved]
  - Bladder disorder [Not Recovered/Not Resolved]
  - Malaise [Not Recovered/Not Resolved]
  - Joint stiffness [Not Recovered/Not Resolved]
  - Mobility decreased [Unknown]
  - Illness [Recovering/Resolving]
  - Nasopharyngitis [Unknown]
  - Stomatitis [Not Recovered/Not Resolved]
  - Cough [Recovering/Resolving]
  - Nasal congestion [Unknown]

NARRATIVE: CASE EVENT DATE: 20240715
